FAERS Safety Report 13149107 (Version 2)
Quarter: 2017Q1

REPORT INFORMATION
  Report Type: Report from Study
  Country: US (occurrence: US)
  Receive Date: 20170125
  Receipt Date: 20170228
  Transmission Date: 20170428
  Serious: Yes (Death, Hospitalization)
  Sender: FDA-Public Use
  Company Number: US-BAYER-2016-236119

PATIENT
  Age: 70 Year
  Sex: Male

DRUGS (10)
  1. XARELTO [Suspect]
     Active Substance: RIVAROXABAN
     Indication: PULMONARY EMBOLISM
  2. XARELTO [Suspect]
     Active Substance: RIVAROXABAN
     Indication: THROMBOSIS
     Dosage: 20 MG, QD
     Route: 048
     Dates: start: 20161218
  3. SPIRONOLACTONE. [Concomitant]
     Active Substance: SPIRONOLACTONE
     Indication: CARDIAC DISORDER
     Dosage: 25 MG, UNK
     Route: 065
     Dates: start: 20160709, end: 20161220
  4. ATORVASTATIN CALCIUM. [Concomitant]
     Active Substance: ATORVASTATIN CALCIUM
     Indication: CARDIAC DISORDER
     Dosage: 40 MG, UNK
     Route: 065
  5. ATIVAN [Concomitant]
     Active Substance: LORAZEPAM
     Indication: INSOMNIA
     Dosage: 1 MG, UNK
     Route: 065
     Dates: start: 20160709, end: 20161220
  6. METOPROLOL. [Concomitant]
     Active Substance: METOPROLOL
     Indication: CARDIAC DISORDER
     Dosage: 12.5 MG, UNK
     Route: 065
     Dates: start: 20160709, end: 20161220
  7. XARELTO [Suspect]
     Active Substance: RIVAROXABAN
     Indication: PULMONARY OEDEMA
     Dosage: 15 MG, BID
     Route: 048
     Dates: start: 20161203, end: 20161217
  8. XARELTO [Suspect]
     Active Substance: RIVAROXABAN
     Indication: EMBOLISM VENOUS
  9. LASIX [Concomitant]
     Active Substance: FUROSEMIDE
     Indication: FLUID RETENTION
     Dosage: 20 MG, UNK
     Route: 065
     Dates: start: 20160709, end: 20161220
  10. ACETYLSALICYLIC ACID({=100 MG) [Suspect]
     Active Substance: ASPIRIN
     Indication: CARDIAC DISORDER
     Dosage: 81 MG, UNK
     Route: 065
     Dates: start: 20160709, end: 20161220

REACTIONS (7)
  - Hospitalisation [Unknown]
  - Haemorrhage [Recovering/Resolving]
  - Adverse event [Unknown]
  - Off label use [Unknown]
  - Drug prescribing error [Unknown]
  - Puncture site haemorrhage [Unknown]
  - Death [Fatal]

NARRATIVE: CASE EVENT DATE: 20161203
